FAERS Safety Report 19678924 (Version 1)
Quarter: 2021Q3

REPORT INFORMATION
  Report Type: Spontaneous
  Country: US (occurrence: US)
  Receive Date: 20210809
  Receipt Date: 20210809
  Transmission Date: 20211014
  Serious: No
  Sender: FDA-Public Use
  Company Number: US-ABBVIE-21K-163-3725706-00

PATIENT
  Sex: Female
  Weight: 63.56 kg

DRUGS (2)
  1. MAVYRET [Suspect]
     Active Substance: GLECAPREVIR\PIBRENTASVIR
     Indication: HEPATITIS C
     Route: 048
     Dates: start: 20201217
  2. DEPAKOTE [Suspect]
     Active Substance: DIVALPROEX SODIUM
     Indication: MIGRAINE
     Dosage: ONLY TOOK FOR ONE WEEK
     Route: 048
     Dates: start: 2006, end: 2006

REACTIONS (4)
  - Diarrhoea [Recovered/Resolved]
  - Product packaging quantity issue [Unknown]
  - Speech disorder [Recovered/Resolved]
  - Manganese decreased [Recovered/Resolved]

NARRATIVE: CASE EVENT DATE: 2006
